FAERS Safety Report 8374235-X (Version None)
Quarter: 2012Q2

REPORT INFORMATION
  Report Type: 
  Country: None (occurrence: None)
  Receive Date: 20120518
  Receipt Date: 20120518
  Transmission Date: 20120825
  Serious: Yes (Hospitalization)
  Sender: FDA-Public Use
  Company Number: None

PATIENT
  Age: 65 Year
  Sex: Female
  Weight: 81.6475 kg

DRUGS (1)
  1. PREDNISOLONE [Suspect]
     Indication: GOUT
     Dosage: 8MG 5 PER DAY PO
     Route: 048
     Dates: start: 20120508, end: 20120512

REACTIONS (3)
  - DISTURBANCE IN ATTENTION [None]
  - NERVOUSNESS [None]
  - INSOMNIA [None]
